FAERS Safety Report 15049018 (Version 1)
Quarter: 2018Q2

REPORT INFORMATION
  Report Type: Spontaneous
  Country: US (occurrence: US)
  Receive Date: 20180622
  Receipt Date: 20180622
  Transmission Date: 20180711
  Serious: No
  Sender: FDA-Public Use
  Company Number: US-BAYER-2018-118308

PATIENT
  Age: 89 Year
  Sex: Female
  Weight: 52 kg

DRUGS (1)
  1. MIRALAX [Suspect]
     Active Substance: POLYETHYLENE GLYCOL 3350
     Indication: GASTROINTESTINAL DISORDER
     Dosage: LESS THAN 1 TEASPOON DOSE
     Route: 065

REACTIONS (2)
  - Product use issue [Unknown]
  - Underdose [Unknown]
